FAERS Safety Report 4344982-5 (Version None)
Quarter: 2004Q2

REPORT INFORMATION
  Report Type: 
  Country: None (occurrence: None)
  Receive Date: 20040420
  Receipt Date: 20040414
  Transmission Date: 20050107
  Serious: Yes (Disabling)
  Sender: FDA-Public Use
  Company Number: 200411120GDS

PATIENT
  Age: 72 Year
  Sex: Female

DRUGS (1)
  1. AVELOX [Suspect]
     Indication: CELLULITIS
     Dosage: 400 MG, QD, ORAL
     Route: 048
     Dates: start: 20040401

REACTIONS (4)
  - DIFFICULTY IN WALKING [None]
  - JOINT STIFFNESS [None]
  - MUSCULOSKELETAL STIFFNESS [None]
  - PAIN IN EXTREMITY [None]
